FAERS Safety Report 24438839 (Version 1)
Quarter: 2024Q4

REPORT INFORMATION
  Report Type: Spontaneous
  Country: US (occurrence: US)
  Receive Date: 20241015
  Receipt Date: 20241015
  Transmission Date: 20250115
  Serious: Yes (Other)
  Sender: PFIZER
  Company Number: US-PFIZER INC-202400273679

PATIENT
  Age: 46 Year
  Sex: Female

DRUGS (3)
  1. PAXLOVID [Suspect]
     Active Substance: NIRMATRELVIR\RITONAVIR
     Indication: COVID-19 treatment
     Dosage: UNK
     Dates: start: 20241002, end: 20241005
  2. ESTRADIOL [Suspect]
     Active Substance: ESTRADIOL
     Indication: Postmenopause
     Dosage: 0.06 MG, WEEKLY(EVERY 7 DAYS)
  3. PROGESTERONE [Suspect]
     Active Substance: PROGESTERONE
     Dosage: 200 MG, DAILY
     Route: 048

REACTIONS (6)
  - Failure to suspend medication [Unknown]
  - Postmenopausal haemorrhage [Unknown]
  - Hormone level abnormal [Unknown]
  - Emotional disorder [Unknown]
  - Pruritus [Unknown]
  - Feeling abnormal [Unknown]

NARRATIVE: CASE EVENT DATE: 20241001
